FAERS Safety Report 21676413 (Version 1)
Quarter: 2022Q4

REPORT INFORMATION
  Report Type: Spontaneous
  Country: CN (occurrence: CN)
  Receive Date: 20221202
  Receipt Date: 20221202
  Transmission Date: 20230112
  Serious: Yes (Hospitalization)
  Sender: FDA-Public Use
  Company Number: CN-ELI_LILLY_AND_COMPANY-CN202211012012

PATIENT
  Age: 54 Year
  Sex: Male
  Weight: 60.5 kg

DRUGS (9)
  1. ALIMTA [Suspect]
     Active Substance: PEMETREXED DISODIUM
     Indication: Lung neoplasm malignant
     Dosage: 0.8 G, SINGLE
     Route: 041
     Dates: start: 20221015, end: 20221015
  2. CAMRELIZUMAB [Suspect]
     Active Substance: CAMRELIZUMAB
     Indication: Lung neoplasm malignant
     Dosage: 200 MG, SINGLE
     Route: 041
     Dates: start: 20221018, end: 20221018
  3. CARBOPLATIN [Suspect]
     Active Substance: CARBOPLATIN
     Indication: Lung neoplasm malignant
     Dosage: 0.2 G, SINGLE
     Route: 041
     Dates: start: 20221015, end: 20221015
  4. CARBOPLATIN [Suspect]
     Active Substance: CARBOPLATIN
     Dosage: 0.3 G, SINGLE
     Route: 041
     Dates: start: 20221016, end: 20221016
  5. SODIUM CHLORIDE [Concomitant]
     Active Substance: SODIUM CHLORIDE
     Indication: Medication dilution
     Dosage: 100 ML, SINGLE
     Route: 041
     Dates: start: 20221015, end: 20221015
  6. SODIUM CHLORIDE [Concomitant]
     Active Substance: SODIUM CHLORIDE
     Dosage: 100 ML, SINGLE
     Route: 041
     Dates: start: 20221018, end: 20221018
  7. STERILE WATER [Concomitant]
     Active Substance: WATER
     Indication: Medication dilution
     Dosage: 6 ML, SINGLE
     Route: 041
     Dates: start: 20221018, end: 20221018
  8. DEXTROSE [Concomitant]
     Active Substance: DEXTROSE
     Indication: Medication dilution
     Dosage: 500 ML, SINGLE
     Route: 041
     Dates: start: 20221015, end: 20221015
  9. DEXTROSE [Concomitant]
     Active Substance: DEXTROSE
     Dosage: 500 ML, SINGLE
     Route: 041
     Dates: start: 20221016, end: 20221016

REACTIONS (2)
  - Drug-induced liver injury [Recovering/Resolving]
  - Myelosuppression [Recovering/Resolving]

NARRATIVE: CASE EVENT DATE: 20221031
